FAERS Safety Report 8139427-3 (Version None)
Quarter: 2012Q1

REPORT INFORMATION
  Report Type: 
  Country: None (occurrence: None)
  Receive Date: 20120215
  Receipt Date: 20120209
  Transmission Date: 20120608
  Serious: Yes (Hospitalization, Other)
  Sender: FDA-Public Use
  Company Number: KR-ROCHE-1026634

PATIENT
  Sex: Male
  Weight: 50.1 kg

DRUGS (17)
  1. FLUOROURACIL [Suspect]
  2. LEUCOVORIN CALCIUM [Suspect]
     Indication: COLORECTAL CANCER METASTATIC
     Route: 042
     Dates: start: 20111129
  3. TAGAMET [Concomitant]
     Dates: start: 20120109
  4. FLUOROURACIL [Suspect]
     Route: 042
     Dates: start: 20120109
  5. IRCODON [Concomitant]
     Dates: start: 20111206
  6. OXYCONTIN [Concomitant]
     Dates: start: 20111215
  7. GANATON [Concomitant]
     Dates: start: 20120109
  8. FEROBA-YOU SR [Concomitant]
     Dates: start: 20111215
  9. ZOLPIDEM [Concomitant]
     Dates: start: 20120109
  10. OXALIPLATIN [Suspect]
     Indication: COLORECTAL CANCER METASTATIC
     Route: 042
     Dates: start: 20111129
  11. FLUOROURACIL [Suspect]
     Indication: COLORECTAL CANCER METASTATIC
     Route: 042
     Dates: start: 20111129
  12. AVASTIN [Suspect]
     Route: 042
     Dates: start: 20120109
  13. OXALIPLATIN [Suspect]
     Route: 042
     Dates: start: 20120109
  14. MAGNESIUM OXIDE [Concomitant]
     Dates: start: 20120109
  15. AVASTIN [Suspect]
     Indication: COLORECTAL CANCER METASTATIC
     Route: 042
     Dates: start: 20111122
  16. NORZYME [Concomitant]
     Dates: start: 20110109
  17. LEUCOVORIN CALCIUM [Suspect]
     Route: 042
     Dates: start: 20120109

REACTIONS (2)
  - ANAL INFECTION [None]
  - RECTAL OBSTRUCTION [None]
